FAERS Safety Report 8536447-1 (Version None)
Quarter: 2012Q3

REPORT INFORMATION
  Report Type: 
  Country: None (occurrence: None)
  Receive Date: 20120725
  Receipt Date: 20120711
  Transmission Date: 20120928
  Serious: Yes (Hospitalization)
  Sender: FDA-Public Use
  Company Number: AT-MYLANLABS-2012S1014348

PATIENT
  Age: 58 Year
  Sex: Male

DRUGS (10)
  1. ATORVASTATIN [Concomitant]
     Route: 065
  2. INSULIN LISPRO [Concomitant]
     Route: 058
  3. ASPIRIN [Concomitant]
     Route: 065
  4. METOPROLOL SUCCINATE [Concomitant]
     Indication: HYPERTENSION
     Route: 065
  5. AMLODIPINE [Concomitant]
     Indication: HYPERTENSION
     Route: 065
  6. LANTUS [Concomitant]
     Route: 058
  7. LITHIUM CARBONATE [Suspect]
     Dosage: 900 MG/DAY; INCREASED TO 1125 MG/DAY 2MOS BEFORE ADMISSION
     Route: 065
  8. FOSINOPRIL SODIUM [Concomitant]
     Indication: HYPERTENSION
     Route: 065
  9. SIMVASTATIN [Concomitant]
     Route: 065
  10. INSULIN [Concomitant]
     Dosage: INSULIN PUMP
     Route: 065

REACTIONS (2)
  - DRUG LEVEL DECREASED [None]
  - FOOD INTERACTION [None]
